FAERS Safety Report 9844317 (Version 1)
Quarter: 2014Q1

REPORT INFORMATION
  Report Type: Report from Study
  Country: CA (occurrence: CA)
  Receive Date: 20140127
  Receipt Date: 20140127
  Transmission Date: 20141002
  Serious: Yes (Other)
  Sender: FDA-Public Use
  Company Number: CA-BRISTOL-MYERS SQUIBB COMPANY-20021408

PATIENT
  Age: 52 Year
  Sex: Female
  Weight: 68.03 kg

DRUGS (1)
  1. ORENCIA [Suspect]
     Indication: RHEUMATOID ARTHRITIS
     Dosage: LAST INF:13DEC13
     Route: 042

REACTIONS (4)
  - Dyspnoea [Unknown]
  - Productive cough [Not Recovered/Not Resolved]
  - Nausea [Unknown]
  - Epistaxis [Unknown]
